FAERS Safety Report 6061361-3 (Version None)
Quarter: 2009Q1

REPORT INFORMATION
  Report Type: 
  Country: None (occurrence: None)
  Receive Date: 20090129
  Receipt Date: 20090129
  Transmission Date: 20090719
  Serious: Yes (Hospitalization, Other)
  Sender: FDA-Public Use
  Company Number: None

PATIENT
  Sex: Female
  Weight: 96.36 kg

DRUGS (3)
  1. BUPROPION HCL SUSTAINED RELEASE (12 HR TAB) [Suspect]
     Dosage: 150MG TABLET SA 150 MG BID ORAL
     Route: 048
     Dates: start: 20081009, end: 20090129
  2. CYCLOBENZAPRINE [Concomitant]
  3. NAPROXEN [Concomitant]

REACTIONS (1)
  - CONVULSION [None]
